FAERS Safety Report 10202039 (Version 1)
Quarter: 2014Q2

REPORT INFORMATION
  Report Type: Spontaneous
  Country: DE (occurrence: FR)
  Receive Date: 20140528
  Receipt Date: 20140528
  Transmission Date: 20141212
  Serious: Yes (Hospitalization)
  Sender: FDA-Public Use
  Company Number: FR-FRI-1000067640

PATIENT
  Age: 86 Year
  Sex: Female

DRUGS (5)
  1. MEMANTINE [Suspect]
     Dates: end: 201402
  2. ARICEPT [Suspect]
     Dosage: 10 MG
     Route: 048
     Dates: end: 20140427
  3. CALCIPRAT D3 [Concomitant]
  4. FLUDEX LP [Concomitant]
     Dosage: 1.5 MG
  5. FORLAX [Concomitant]
     Dosage: 10 MG

REACTIONS (1)
  - Hepatocellular injury [Recovering/Resolving]
